FAERS Safety Report 7002353-7 (Version None)
Quarter: 2010Q3

REPORT INFORMATION
  Report Type: 
  Country: None (occurrence: None)
  Receive Date: 20100920
  Receipt Date: 20100713
  Transmission Date: 20110219
  Serious: No
  Sender: FDA-Public Use
  Company Number: US-ASTRAZENECA-2010SE33719

PATIENT
  Age: 41 Year
  Sex: Male
  Weight: 122 kg

DRUGS (3)
  1. SEROQUEL [Suspect]
     Route: 048
     Dates: start: 20031021
  2. REMERON [Concomitant]
     Dates: start: 20031021
  3. GLIPIZIDE [Concomitant]
     Dates: start: 20031126

REACTIONS (2)
  - MYALGIA [None]
  - TYPE 2 DIABETES MELLITUS [None]
